FAERS Safety Report 10448070 (Version 4)
Quarter: 2015Q2

REPORT INFORMATION
  Report Type: Report from Study
  Country: NZ (occurrence: NZ)
  Receive Date: 20140911
  Receipt Date: 20150623
  Transmission Date: 20150821
  Serious: Yes (Other)
  Sender: FDA-Public Use
  Company Number: NZ-PFIZER INC-2014246613

PATIENT
  Age: 17 Year
  Sex: Female
  Weight: 67.9 kg

DRUGS (3)
  1. CRIZOTINIB [Suspect]
     Active Substance: CRIZOTINIB
     Indication: NEUROBLASTOMA
     Dosage: 200 MG, 2X/DAY
     Route: 048
     Dates: start: 20140818, end: 20140905
  2. CRIZOTINIB [Suspect]
     Active Substance: CRIZOTINIB
     Dosage: 350 MG, 2X/DAY
  3. CRIZOTINIB [Suspect]
     Active Substance: CRIZOTINIB
     Dosage: 250 MG, 2X/DAY
     Route: 048
     Dates: start: 20140818, end: 20140905

REACTIONS (4)
  - Visual impairment [Unknown]
  - Neutropenia [Recovering/Resolving]
  - Acute kidney injury [Recovered/Resolved]
  - Nausea [Unknown]

NARRATIVE: CASE EVENT DATE: 20140905
